FAERS Safety Report 4872545-1 (Version None)
Quarter: 2006Q1

REPORT INFORMATION
  Report Type: 
  Country: None (occurrence: None)
  Receive Date: 20060105
  Receipt Date: 20051228
  Transmission Date: 20060701
  Serious: Yes (Other)
  Sender: FDA-Public Use
  Company Number: US-JNJFOC-20051000606

PATIENT
  Sex: Female
  Weight: 67.59 kg

DRUGS (5)
  1. REMICADE [Suspect]
     Dosage: 4 VIALS
     Route: 042
  2. REMICADE [Suspect]
     Indication: CROHN'S DISEASE
     Dosage: 30 INFUSIONS ON UNSPECIFIED DATES, 4 VIALS
     Route: 042
  3. DIGOXIN [Concomitant]
  4. TOPROL-XL [Concomitant]
  5. XANAX [Concomitant]

REACTIONS (6)
  - EYE DISORDER [None]
  - EYE PAIN [None]
  - LACRIMATION INCREASED [None]
  - PHOTOPHOBIA [None]
  - VISION BLURRED [None]
  - VITREOUS FLOATERS [None]
